FAERS Safety Report 18774649 (Version 1)
Quarter: 2021Q1

REPORT INFORMATION
  Report Type: Report from Study
  Country: NL (occurrence: NL)
  Receive Date: 20210122
  Receipt Date: 20210122
  Transmission Date: 20210419
  Serious: Yes (Other)
  Sender: FDA-Public Use
  Company Number: NVSC2021NL011762

PATIENT
  Age: 56 Year
  Sex: Female

DRUGS (1)
  1. ACLASTA [Suspect]
     Active Substance: ZOLEDRONIC ACID
     Indication: OSTEOPOROSIS
     Dosage: UNK(DOSAGE: 1 IN TO 52 WEEKS)
     Route: 042

REACTIONS (10)
  - Ill-defined disorder [Unknown]
  - Fatigue [Unknown]
  - Type 1 diabetes mellitus [Unknown]
  - Hypokinesia [Unknown]
  - Infusion site extravasation [Recovered/Resolved]
  - Rash pruritic [Recovering/Resolving]
  - Skin mass [Unknown]
  - Infusion site swelling [Unknown]
  - Blood glucose abnormal [Unknown]
  - Rash erythematous [Unknown]

NARRATIVE: CASE EVENT DATE: 20210115
